FAERS Safety Report 6864464-6 (Version None)
Quarter: 2010Q3

REPORT INFORMATION
  Report Type: 
  Country: None (occurrence: None)
  Receive Date: 20100721
  Receipt Date: 20080331
  Transmission Date: 20110219
  Serious: No
  Sender: FDA-Public Use
  Company Number: US-PFIZER INC-2008029001

PATIENT
  Sex: Female
  Weight: 58.636 kg

DRUGS (3)
  1. CHANTIX [Suspect]
     Indication: SMOKING CESSATION THERAPY
     Route: 048
     Dates: start: 20080322, end: 20080325
  2. ZOLOFT [Concomitant]
  3. SYNTHROID [Concomitant]

REACTIONS (9)
  - CONFUSIONAL STATE [None]
  - DEPRESSION [None]
  - DIZZINESS [None]
  - DYSGEUSIA [None]
  - FEELING ABNORMAL [None]
  - HEADACHE [None]
  - MENTAL DISORDER [None]
  - NAUSEA [None]
  - SLEEP DISORDER [None]
